FAERS Safety Report 12192574 (Version 4)
Quarter: 2016Q2

REPORT INFORMATION
  Report Type: Spontaneous
  Country: US (occurrence: US)
  Receive Date: 20160318
  Receipt Date: 20160429
  Transmission Date: 20160815
  Serious: Yes (Hospitalization, Disabling, Other)
  Sender: FDA-Public Use
  Company Number: US-TEVA-644802USA

PATIENT
  Age: 47 Year
  Sex: Male

DRUGS (5)
  1. CAPECITABINE. [Suspect]
     Active Substance: CAPECITABINE
     Indication: ADENOCARCINOMA OF COLON
     Dosage: 1600 MG TWICE DAILY (1264 MG/M^2/DAY)
     Route: 065
  2. ONDANSETRON [Concomitant]
     Active Substance: ONDANSETRON
     Indication: NAUSEA
     Dosage: AS NEEDED
  3. VITAMIN D [Concomitant]
     Active Substance: CHOLECALCIFEROL
  4. IBUPROFEN. [Concomitant]
     Active Substance: IBUPROFEN
     Dosage: 400-800 MG AS NEEDED
  5. HYDROCHLOROTHIAZIDE. [Concomitant]
     Active Substance: HYDROCHLOROTHIAZIDE

REACTIONS (3)
  - Cardiac arrest [Recovered/Resolved]
  - Ventricular fibrillation [Recovered/Resolved]
  - Kounis syndrome [Recovered/Resolved]

NARRATIVE: CASE EVENT DATE: 201502
